FAERS Safety Report 23284362 (Version 1)
Quarter: 2023Q4

REPORT INFORMATION
  Report Type: Spontaneous
  Country: US (occurrence: US)
  Receive Date: 20231211
  Receipt Date: 20231211
  Transmission Date: 20240110
  Serious: No
  Sender: FDA-Public Use
  Company Number: US-PFIZER INC-202300426635

PATIENT
  Age: 46 Year
  Sex: Female

DRUGS (1)
  1. XELJANZ [Suspect]
     Active Substance: TOFACITINIB CITRATE
     Dosage: 1 DF, 2X/DAY (TAKE 1 TABLET BY MOUTH TWICE A DAY)
     Route: 048

REACTIONS (2)
  - Drug ineffective [Unknown]
  - Blood pressure increased [Unknown]
